FAERS Safety Report 9212911 (Version 1)
Quarter: 2013Q2

REPORT INFORMATION
  Report Type: Report from Study
  Country: CA (occurrence: CA)
  Receive Date: 20130405
  Receipt Date: 20130405
  Transmission Date: 20140414
  Serious: Yes (Other)
  Sender: FDA-Public Use
  Company Number: CA-JNJFOC-20130316212

PATIENT
  Age: 43 Year
  Sex: Male
  Weight: 93 kg

DRUGS (8)
  1. REMICADE [Suspect]
     Indication: COLITIS ULCERATIVE
     Dosage: STOP DATE: ^5-0^
     Route: 042
     Dates: start: 20130326
  2. REMICADE [Suspect]
     Indication: COLITIS ULCERATIVE
     Dosage: STOP DATE: ^5-0^
     Route: 042
     Dates: start: 200701
  3. ATACAND [Concomitant]
     Dosage: RECENTLY DISCONTINUED
     Route: 065
  4. PREDNISONE [Concomitant]
     Route: 065
  5. ACTONEL [Concomitant]
     Route: 048
  6. CALCIUM [Concomitant]
     Dosage: 500/? 400 BID
     Route: 065
  7. NORVASC [Concomitant]
     Route: 065
  8. CARDURA [Concomitant]
     Route: 065

REACTIONS (4)
  - Atrial fibrillation [Unknown]
  - Wound [Unknown]
  - Pyrexia [Unknown]
  - Sinusitis [Unknown]
